FAERS Safety Report 22270275 (Version 1)
Quarter: 2023Q2

REPORT INFORMATION
  Report Type: Spontaneous
  Country: US (occurrence: None)
  Receive Date: 20230428
  Receipt Date: 20230428
  Transmission Date: 20230721
  Serious: Yes (Death)
  Sender: FDA-Public Use
  Company Number: None

PATIENT
  Age: 87 Year
  Sex: Male
  Weight: 59.1 kg

DRUGS (13)
  1. COTELLIC [Suspect]
     Active Substance: COBIMETINIB
     Indication: Malignant melanoma
     Dosage: OTHER FREQUENCY : 3W,1WOFF;?
     Route: 048
     Dates: end: 20230417
  2. ZELBORAF [Suspect]
     Active Substance: VEMURAFENIB
     Indication: Malignant melanoma
     Dosage: OTHER FREQUENCY : EVERY12HOURS;?
     Route: 048
     Dates: end: 20230417
  3. CRESTOR [Concomitant]
  4. HYDROCODONE-ACETAMINOPHEN [Concomitant]
  5. HYDROCORTISONE [Concomitant]
  6. MIRALAX [Concomitant]
  7. ONDANSETRON [Concomitant]
  8. PLAVIX [Concomitant]
     Active Substance: CLOPIDOGREL BISULFATE
  9. SLOW FE [Concomitant]
  10. TECENTRIQ INTRAVENOUS [Concomitant]
  11. TERAZOSIN [Concomitant]
  12. TORSEMIDE [Concomitant]
  13. TRIAMCINOLONE [Concomitant]
     Active Substance: TRIAMCINOLONE

REACTIONS (1)
  - Death [None]
